FAERS Safety Report 5722632-0 (Version None)
Quarter: 2008Q2

REPORT INFORMATION
  Report Type: 
  Country: None (occurrence: None)
  Receive Date: 20080429
  Receipt Date: 20070913
  Transmission Date: 20081010
  Serious: No
  Sender: FDA-Public Use
  Company Number: US-ASTRAZENECA-2007UW21762

PATIENT
  Age: 19 Year
  Sex: Female

DRUGS (3)
  1. NEXIUM [Suspect]
     Indication: DYSPEPSIA
     Route: 048
  2. MIRALAX [Concomitant]
  3. UNSPECIFIED ANTIBIOTICS [Concomitant]

REACTIONS (1)
  - PALPITATIONS [None]
